FAERS Safety Report 9030331 (Version 2)
Quarter: 2013Q3

REPORT INFORMATION
  Report Type: Spontaneous
  Country: US (occurrence: US)
  Receive Date: 20130122
  Receipt Date: 20130913
  Transmission Date: 20140515
  Serious: Yes (Other)
  Sender: FDA-Public Use
  Company Number: US-PFIZER INC-2013022462

PATIENT
  Age: 56 Year
  Sex: Female
  Weight: 70.3 kg

DRUGS (8)
  1. NEURONTIN [Suspect]
     Indication: CARPAL TUNNEL SYNDROME
     Dosage: 600 MG, 3X/DAY
     Dates: start: 2012
  2. NEURONTIN [Suspect]
     Indication: FIBROMYALGIA
  3. NEURONTIN [Suspect]
     Indication: BACK DISORDER
  4. LYRICA [Suspect]
     Indication: CARPAL TUNNEL SYNDROME
     Dosage: UNK
  5. LYRICA [Suspect]
     Indication: FIBROMYALGIA
  6. CELEBREX [Suspect]
     Indication: CARPAL TUNNEL SYNDROME
     Dosage: 200 MG, 2X/DAY
     Dates: start: 2010
  7. CELEBREX [Suspect]
     Indication: FIBROMYALGIA
  8. PREMARIN [Suspect]
     Indication: HOT FLUSH
     Dosage: 1.25 MG, DAILY
     Dates: start: 2012

REACTIONS (4)
  - Hiatus hernia [Not Recovered/Not Resolved]
  - Abdominal pain upper [Not Recovered/Not Resolved]
  - Gastrooesophageal reflux disease [Not Recovered/Not Resolved]
  - Dyspepsia [Not Recovered/Not Resolved]
